FAERS Safety Report 9681907 (Version 1)
Quarter: 2013Q4

REPORT INFORMATION
  Report Type: Spontaneous
  Country: FR (occurrence: FR)
  Receive Date: 20131111
  Receipt Date: 20131111
  Transmission Date: 20140711
  Serious: Yes (Hospitalization)
  Sender: FDA-Public Use
  Company Number: PHHY2013FR126746

PATIENT
  Age: 70 Year
  Sex: Female

DRUGS (12)
  1. COTAREG [Suspect]
     Indication: HYPERTENSION
     Dosage: 1 DF, (160 MG VALA/ UNK) QD
     Route: 048
     Dates: end: 20121018
  2. IBUPROFEN SANDOZ [Suspect]
     Indication: ARTHRALGIA
     Dosage: UNK UKN, UNK
     Dates: start: 20121011, end: 20121018
  3. ZANIDIP [Suspect]
     Indication: HYPERTENSION
     Dosage: 1 DF, (10 MG) QD
     Route: 048
     Dates: end: 20121018
  4. ZOLOFT (SERTRALINE HYDROCHLORIDE) [Concomitant]
     Dosage: 50 MG, QD
  5. XANAX [Concomitant]
     Dosage: 0.25 MG, QD
  6. IMOVANE [Concomitant]
     Dosage: 1 DF, QD
  7. LEVOTHYROX [Concomitant]
     Dosage: 50 UG, QD
  8. CRESTOR [Concomitant]
     Dosage: 5 MG, QD
  9. INEXIUM//ESOMEPRAZOLE MAGNESIUM [Concomitant]
     Dosage: 20 MG, QD
  10. FUMAFER [Concomitant]
     Dosage: 66 MG, BID
  11. BIO FOLIC ACID [Concomitant]
     Dosage: 5 MG, TID
  12. OXYNORM [Concomitant]
     Dosage: 20 MG, UNK
     Dates: end: 201208

REACTIONS (2)
  - Hypotension [Recovered/Resolved]
  - Renal failure acute [Recovered/Resolved]
